FAERS Safety Report 21151359 (Version 1)
Quarter: 2022Q3

REPORT INFORMATION
  Report Type: Report from Study
  Country: US (occurrence: US)
  Receive Date: 20220730
  Receipt Date: 20220730
  Transmission Date: 20221027
  Serious: Yes (Other)
  Sender: FDA-Public Use
  Company Number: US-NOVARTISPH-NVSC2022US171199

PATIENT
  Age: 57 Year
  Sex: Male

DRUGS (1)
  1. ENTRESTO [Suspect]
     Active Substance: SACUBITRIL\VALSARTAN
     Indication: Cardiac failure
     Dosage: UNK UNK, BID
     Route: 048
     Dates: start: 202201

REACTIONS (6)
  - Ischaemic cardiomyopathy [Recovering/Resolving]
  - Cardiac disorder [Recovering/Resolving]
  - Weight decreased [Recovering/Resolving]
  - Blood triglycerides decreased [Recovered/Resolved]
  - Glycosylated haemoglobin decreased [Recovered/Resolved]
  - Gait disturbance [Recovering/Resolving]

NARRATIVE: CASE EVENT DATE: 20220301
